FAERS Safety Report 17281547 (Version 1)
Quarter: 2020Q1

REPORT INFORMATION
  Report Type: Spontaneous
  Country: US (occurrence: US)
  Receive Date: 20191227
  Receipt Date: 20191227
  Transmission Date: 20200409
  Serious: Yes (Other)
  Sender: FDA-Public Use
  Company Number: None

PATIENT
  Age: 61 Year
  Sex: Female
  Weight: 54.43 kg

DRUGS (14)
  1. DILTIAZEN [Concomitant]
     Active Substance: DILTIAZEM
  2. CALCIUM + MAGNESIUM [Concomitant]
  3. CURAMEN [Concomitant]
  4. POTASSIUM CHLORIDE. [Concomitant]
     Active Substance: POTASSIUM CHLORIDE
  5. KEVEYIS [Suspect]
     Active Substance: DICHLORPHENAMIDE
     Indication: PARALYSIS
     Dosage: ?          QUANTITY:1 DF DOSAGE FORM;?
     Route: 048
     Dates: start: 20180507, end: 20191015
  6. MYSOLINE [Concomitant]
     Active Substance: PRIMIDONE
  7. ELIQUIS [Concomitant]
     Active Substance: APIXABAN
  8. BACLOFEN. [Concomitant]
     Active Substance: BACLOFEN
  9. BUPROPION. [Concomitant]
     Active Substance: BUPROPION
  10. OMEGA AVAIL [Concomitant]
  11. OMMUIM [Concomitant]
  12. PRIMIDONE. [Concomitant]
     Active Substance: PRIMIDONE
  13. GABAPENTIN. [Concomitant]
     Active Substance: GABAPENTIN
  14. MAGNESIUM [Concomitant]
     Active Substance: MAGNESIUM

REACTIONS (6)
  - Confusional state [None]
  - Fatigue [None]
  - Migraine [None]
  - Paraesthesia [None]
  - Nervous system disorder [None]
  - Anxiety [None]

NARRATIVE: CASE EVENT DATE: 20191010
